FAERS Safety Report 21756292 (Version 2)
Quarter: 2023Q2

REPORT INFORMATION
  Report Type: Spontaneous
  Country: AU (occurrence: AU)
  Receive Date: 20221220
  Receipt Date: 20230622
  Transmission Date: 20230722
  Serious: No
  Sender: FDA-Public Use
  Company Number: AU-PHARMAMAR-2022PM000478

PATIENT

DRUGS (1)
  1. ZEPZELCA [Suspect]
     Active Substance: LURBINECTEDIN
     Indication: Small cell lung cancer metastatic
     Dosage: 5.5 MILLIGRAM (2 X 4MG ZEPZELCA), POWDER FOR CONCENTRATE FOR SOLUTION FOR INFUSION
     Route: 042

REACTIONS (2)
  - Cold sweat [Unknown]
  - Hyperhidrosis [Unknown]
